FAERS Safety Report 4796870-8 (Version None)
Quarter: 2005Q4

REPORT INFORMATION
  Report Type: 
  Country: None (occurrence: None)
  Receive Date: 20051006
  Receipt Date: 20051006
  Transmission Date: 20060501
  Serious: Yes (Hospitalization)
  Sender: FDA-Public Use
  Company Number: None

PATIENT
  Age: 44 Year
  Sex: Female
  Weight: 64.8 kg

DRUGS (4)
  1. WARFARIN [Suspect]
     Indication: CATHETER RELATED COMPLICATION
     Dosage: 1 MG PO DAILY
     Route: 048
     Dates: end: 20041212
  2. DOCUSATE [Concomitant]
  3. OXYCODONE [Concomitant]
  4. WARFARIN [Concomitant]

REACTIONS (5)
  - CELLULITIS [None]
  - OEDEMA PERIPHERAL [None]
  - PYREXIA [None]
  - SWELLING FACE [None]
  - VENA CAVA THROMBOSIS [None]
